FAERS Safety Report 5402634-4 (Version None)
Quarter: 2007Q3

REPORT INFORMATION
  Report Type: 
  Country: None (occurrence: None)
  Receive Date: 20070801
  Receipt Date: 20070727
  Transmission Date: 20080115
  Serious: Yes (Other)
  Sender: FDA-Public Use
  Company Number: US-BRISTOL-MYERS SQUIBB COMPANY-13861331

PATIENT
  Age: 32 Month
  Sex: Female

DRUGS (6)
  1. VINCRISTINE SULFATE [Suspect]
     Indication: RETINOBLASTOMA
  2. ETOPOSIDE [Suspect]
     Indication: RETINOBLASTOMA
  3. CARBOPLATIN [Suspect]
     Indication: RETINOBLASTOMA
  4. METHOTREXATE SODIUM [Suspect]
     Indication: RETINOBLASTOMA
  5. CYCLOSPORINE [Suspect]
     Indication: RETINOBLASTOMA
  6. CYTARABINE [Suspect]
     Indication: RETINOBLASTOMA
     Route: 037

REACTIONS (1)
  - MYELOID LEUKAEMIA [None]
